FAERS Safety Report 4746955-7 (Version None)
Quarter: 2005Q3

REPORT INFORMATION
  Report Type: 
  Country: None (occurrence: None)
  Receive Date: 20050815
  Receipt Date: 20050728
  Transmission Date: 20060218
  Serious: Yes (Hospitalization)
  Sender: FDA-Public Use
  Company Number: USA050392235

PATIENT
  Age: 88 Year
  Sex: Female

DRUGS (1)
  1. FORTEO [Suspect]
     Indication: OSTEOPOROSIS
     Dates: start: 20030301, end: 20041118

REACTIONS (4)
  - BACK PAIN [None]
  - DISEASE RECURRENCE [None]
  - SPINAL DISORDER [None]
  - SPINAL FRACTURE [None]
